FAERS Safety Report 24691305 (Version 1)
Quarter: 2024Q4

REPORT INFORMATION
  Report Type: Spontaneous
  Country: US (occurrence: US)
  Receive Date: 20241203
  Receipt Date: 20241203
  Transmission Date: 20250115
  Serious: No
  Sender: APELLIS PHARMACEUTICALS
  Company Number: US-APELLIS-2024-APL-0001573

PATIENT

DRUGS (1)
  1. EMPAVELI [Suspect]
     Active Substance: PEGCETACOPLAN
     Indication: Paroxysmal nocturnal haemoglobinuria
     Route: 058

REACTIONS (3)
  - Incorrect product administration duration [Unknown]
  - Device difficult to use [None]
  - Device deployment issue [None]

NARRATIVE: CASE EVENT DATE: 20241125
